FAERS Safety Report 12220917 (Version 2)
Quarter: 2016Q2

REPORT INFORMATION
  Report Type: Spontaneous
  Country: SE (occurrence: SE)
  Receive Date: 20160330
  Receipt Date: 20160426
  Transmission Date: 20160815
  Serious: Yes (Death)
  Sender: FDA-Public Use
  Company Number: SE-NOVOPROD-484860

PATIENT

DRUGS (1)
  1. TRESIBA [Suspect]
     Active Substance: INSULIN DEGLUDEC
     Indication: DIABETES MELLITUS
     Route: 064
     Dates: start: 201510, end: 20151211

REACTIONS (3)
  - Exomphalos [Fatal]
  - Foetal exposure during pregnancy [Fatal]
  - Congenital absence of cranial vault [Fatal]

NARRATIVE: CASE EVENT DATE: 201603
